FAERS Safety Report 11177112 (Version 3)
Quarter: 2015Q3

REPORT INFORMATION
  Report Type: Spontaneous
  Country: US (occurrence: US)
  Receive Date: 20150610
  Receipt Date: 20150812
  Transmission Date: 20151125
  Serious: Yes (Hospitalization)
  Sender: FDA-Public Use
  Company Number: US-BEH-2015051698

PATIENT
  Age: 51 Year
  Sex: Female

DRUGS (1)
  1. ZEMAIRA [Suspect]
     Active Substance: .ALPHA.1-PROTEINASE INHIBITOR HUMAN
     Indication: EMPHYSEMA
     Dosage: 1000 MG INJECTION 60 MG/KG (=/- 10% DOSE= 5X918=4590) INTRAVENOUSLY WEEKLY NOT TO EXCEED 0.08ML/KG/
     Route: 042
     Dates: start: 20140730

REACTIONS (2)
  - Lung transplant [Unknown]
  - Hospitalisation [Not Recovered/Not Resolved]

NARRATIVE: CASE EVENT DATE: 20150608
